FAERS Safety Report 6400862-2 (Version None)
Quarter: 2009Q4

REPORT INFORMATION
  Report Type: 
  Country: None (occurrence: None)
  Receive Date: 20091009
  Receipt Date: 20090106
  Transmission Date: 20100525
  Serious: Yes (Death, Other)
  Sender: FDA-Public Use
  Company Number: 2009SP000212

PATIENT

DRUGS (1)
  1. TEMODAR [Suspect]
     Indication: DRUG USE FOR UNKNOWN INDICATION

REACTIONS (2)
  - APLASTIC ANAEMIA [None]
  - DISEASE PROGRESSION [None]
